FAERS Safety Report 12398254 (Version 1)
Quarter: 2016Q2

REPORT INFORMATION
  Report Type: Spontaneous
  Country: US (occurrence: US)
  Receive Date: 20160524
  Receipt Date: 20160524
  Transmission Date: 20160815
  Serious: Yes (Other)
  Sender: FDA-Public Use
  Company Number: US-PFIZER INC-2016263851

PATIENT
  Sex: Female
  Weight: 57 kg

DRUGS (1)
  1. GABAPENTIN. [Suspect]
     Active Substance: GABAPENTIN
     Indication: FIBROMYALGIA
     Dosage: 3000 MG, DAILY, 3 CAPSULES IN THE MORNING, 3 CAPSULES IN THE AFTERNOON AND 4 CAPSULES AT NIGHT

REACTIONS (4)
  - Pain [Unknown]
  - Condition aggravated [Unknown]
  - Off label use [Unknown]
  - Cataract [Unknown]
